FAERS Safety Report 22523133 (Version 1)
Quarter: 2023Q2

REPORT INFORMATION
  Report Type: Spontaneous
  Country: NL (occurrence: NL)
  Receive Date: 20230606
  Receipt Date: 20230606
  Transmission Date: 20230722
  Serious: Yes (Hospitalization, Other)
  Sender: FDA-Public Use
  Company Number: NL-ALKEM LABORATORIES LIMITED-NL-ALKEM-2023-04083

PATIENT
  Age: 43 Year
  Sex: Female
  Weight: 69.7 kg

DRUGS (4)
  1. VANCOMYCIN [Suspect]
     Active Substance: VANCOMYCIN
     Indication: Vascular device infection
     Dosage: 1 GRAM, TID (3 TIMES DAILY, 43 MG/KG/D)
     Route: 042
  2. VANCOMYCIN [Suspect]
     Active Substance: VANCOMYCIN
     Dosage: 4 GRAM, QD, (57 MG/KG) PER 24 HOURS
     Route: 042
  3. VANCOMYCIN [Suspect]
     Active Substance: VANCOMYCIN
     Dosage: 8 GRAM, QD (114.8 MG/KG) PER 24-HOUR CI
     Route: 042
  4. VANCOMYCIN [Suspect]
     Active Substance: VANCOMYCIN
     Dosage: 10 GRAM, QD, (EVERY 24 HOURS VIA CONTINUOUS INFUSION)
     Route: 042

REACTIONS (5)
  - Renal impairment [Recovered/Resolved]
  - Nephropathy toxic [Unknown]
  - Abdominal discomfort [Unknown]
  - Nausea [Unknown]
  - Drug level below therapeutic [Unknown]
